FAERS Safety Report 7437044-1 (Version None)
Quarter: 2011Q2

REPORT INFORMATION
  Report Type: 
  Country: None (occurrence: None)
  Receive Date: 20110426
  Receipt Date: 20110412
  Transmission Date: 20111010
  Serious: Yes (Other)
  Sender: FDA-Public Use
  Company Number: PHHY2011IN30652

PATIENT
  Age: 40 Year
  Sex: Female

DRUGS (4)
  1. RISPERIDONE [Concomitant]
     Dosage: 6 MG, DAILY
  2. CLOZAPINE [Suspect]
     Dosage: 350 MG, DAILY
  3. CHLORPROMAZINE [Concomitant]
     Dosage: 40 MG, UNK
  4. FLUPENTIXOL [Concomitant]
     Dosage: 40 MG, FORTNIGHTLY

REACTIONS (5)
  - OBSESSIVE-COMPULSIVE DISORDER [None]
  - PSYCHOTIC DISORDER [None]
  - HALLUCINATION, AUDITORY [None]
  - SUICIDAL IDEATION [None]
  - OBESITY [None]
